FAERS Safety Report 4599949-9 (Version None)
Quarter: 2005Q1

REPORT INFORMATION
  Report Type: 
  Country: None (occurrence: None)
  Receive Date: 20050304
  Receipt Date: 20050304
  Transmission Date: 20050727
  Serious: Yes (Hospitalization)
  Sender: FDA-Public Use
  Company Number: None

PATIENT
  Age: 19 Year
  Sex: Male
  Weight: 80 kg

DRUGS (1)
  1. MEFLOQUINE [Suspect]
     Indication: MALARIA PROPHYLAXIS
     Dosage: 250 MG QWEEK ORAL
     Route: 048
     Dates: start: 20050119, end: 20050126

REACTIONS (3)
  - DELIRIUM [None]
  - HALLUCINATION [None]
  - THINKING ABNORMAL [None]
